FAERS Safety Report 7644938-0 (Version None)
Quarter: 2011Q3

REPORT INFORMATION
  Report Type: 
  Country: None (occurrence: None)
  Receive Date: 20110729
  Receipt Date: 20110726
  Transmission Date: 20111222
  Serious: Yes (Other)
  Sender: FDA-Public Use
  Company Number: TH-VIIV HEALTHCARE LIMITED-A0885138A

PATIENT
  Age: 27 Year
  Sex: Female

DRUGS (3)
  1. ISENTRESS [Suspect]
     Indication: ANTIVIRAL TREATMENT
     Dosage: 800MGD PER DAY
     Route: 048
     Dates: start: 20060817, end: 20070424
  2. EPIVIR [Suspect]
     Indication: ANTIVIRAL TREATMENT
     Dosage: 300MGD PER DAY
     Route: 048
     Dates: start: 20050913, end: 20070424
  3. VIREAD [Suspect]
     Indication: ANTIVIRAL TREATMENT
     Dosage: 300MGD PER DAY
     Route: 048
     Dates: start: 20050913, end: 20070424

REACTIONS (2)
  - ABORTION INDUCED [None]
  - MATERNAL EXPOSURE DURING PREGNANCY [None]
